FAERS Safety Report 4699681-7 (Version None)
Quarter: 2005Q2

REPORT INFORMATION
  Report Type: 
  Country: None (occurrence: None)
  Receive Date: 20050623
  Receipt Date: 20050607
  Transmission Date: 20051028
  Serious: Yes (Hospitalization)
  Sender: FDA-Public Use
  Company Number: 2005PL000045

PATIENT
  Age: 23 Year
  Sex: Male

DRUGS (4)
  1. AZATHIOPRINE [Suspect]
     Indication: HEART TRANSPLANT
     Dosage: 1.5 MG/KG
  2. CYCLOSPORINE [Suspect]
     Indication: HEART TRANSPLANT
  3. PREDNISONE [Suspect]
     Indication: HEART TRANSPLANT
     Dosage: 7.5 MG;QD
     Dates: end: 19880101
  4. ATG-FRESENIUS [Concomitant]

REACTIONS (9)
  - CYTOMEGALOVIRUS INFECTION [None]
  - EPSTEIN-BARR VIRUS INFECTION [None]
  - HERPES SIMPLEX [None]
  - HERPES ZOSTER [None]
  - LEIOMYOSARCOMA [None]
  - LOWER RESPIRATORY TRACT INFECTION [None]
  - OPPORTUNISTIC INFECTION [None]
  - PNEUMOCYSTIS JIROVECI PNEUMONIA [None]
  - UPPER RESPIRATORY TRACT INFECTION [None]
